FAERS Safety Report 5594038-9 (Version None)
Quarter: 2008Q1

REPORT INFORMATION
  Report Type: 
  Country: None (occurrence: None)
  Receive Date: 20080114
  Receipt Date: 20071227
  Transmission Date: 20080703
  Serious: Yes (Hospitalization, Disabling)
  Sender: FDA-Public Use
  Company Number: 2007JP005638

PATIENT
  Age: 24 Year
  Sex: Male
  Weight: 57 kg

DRUGS (17)
  1. PROGRAF [Suspect]
     Indication: STEM CELL TRANSPLANT
     Dosage: SEE IMAGE
     Route: 041
     Dates: start: 20020417, end: 20020421
  2. PROGRAF [Suspect]
     Indication: STEM CELL TRANSPLANT
     Dosage: SEE IMAGE
     Route: 041
     Dates: start: 20020422, end: 20020423
  3. PROGRAF [Suspect]
     Indication: STEM CELL TRANSPLANT
     Dosage: SEE IMAGE
     Route: 041
     Dates: start: 20020424, end: 20020502
  4. PROGRAF [Suspect]
     Indication: STEM CELL TRANSPLANT
     Dosage: SEE IMAGE
     Route: 041
     Dates: start: 20020503, end: 20020508
  5. PROGRAF [Suspect]
     Indication: STEM CELL TRANSPLANT
     Dosage: SEE IMAGE
     Route: 041
     Dates: start: 20020509, end: 20020515
  6. PROGRAF [Suspect]
     Indication: STEM CELL TRANSPLANT
     Dosage: SEE IMAGE
     Route: 041
     Dates: start: 20020516, end: 20020521
  7. PROGRAF [Suspect]
     Indication: STEM CELL TRANSPLANT
     Dosage: 0.8 MG, BID, ORAL; 0.9 MG, BID, ORAL; 0.45 MG, BID, ORAL
     Route: 048
     Dates: start: 20020522, end: 20020603
  8. PROGRAF [Suspect]
     Indication: STEM CELL TRANSPLANT
     Dosage: 0.8 MG, BID, ORAL; 0.9 MG, BID, ORAL; 0.45 MG, BID, ORAL
     Route: 048
     Dates: start: 20020604, end: 20020616
  9. PROGRAF [Suspect]
     Indication: STEM CELL TRANSPLANT
     Dosage: 0.8 MG, BID, ORAL; 0.9 MG, BID, ORAL; 0.45 MG, BID, ORAL
     Route: 048
     Dates: start: 20020617, end: 20020618
  10. MEDROL [Suspect]
     Indication: STEM CELL TRANSPLANT
     Dosage: SEE IMAGE
     Route: 048
     Dates: start: 20020528, end: 20020603
  11. MEDROL [Suspect]
     Indication: STEM CELL TRANSPLANT
     Dosage: SEE IMAGE
     Route: 048
     Dates: start: 20020604, end: 20020610
  12. MEDROL [Suspect]
     Indication: STEM CELL TRANSPLANT
     Dosage: SEE IMAGE
     Route: 048
     Dates: start: 20020611, end: 20020615
  13. MEDROL [Suspect]
     Indication: STEM CELL TRANSPLANT
     Dosage: SEE IMAGE
     Route: 048
     Dates: start: 20020616, end: 20020620
  14. MEDROL [Suspect]
     Indication: STEM CELL TRANSPLANT
     Dosage: SEE IMAGE
     Route: 048
     Dates: start: 20020621, end: 20020624
  15. MEDROL [Suspect]
     Indication: STEM CELL TRANSPLANT
     Dosage: SEE IMAGE
     Route: 048
     Dates: start: 20020625, end: 20020626
  16. MEDROL [Suspect]
     Indication: STEM CELL TRANSPLANT
     Dosage: SEE IMAGE
     Route: 048
     Dates: start: 20020627, end: 20020627
  17. ALEVIATIN (PHENYTOIN) INJECTION [Concomitant]

REACTIONS (8)
  - CLONIC CONVULSION [None]
  - CYTOMEGALOVIRUS ANTIGEN POSITIVE [None]
  - HALLUCINATION, VISUAL [None]
  - HEMIANOPIA [None]
  - MUCORMYCOSIS [None]
  - REVERSIBLE POSTERIOR LEUKOENCEPHALOPATHY SYNDROME [None]
  - SINUSITIS [None]
  - TOOTH EXTRACTION [None]
